FAERS Safety Report 17189697 (Version 1)
Quarter: 2019Q4

REPORT INFORMATION
  Report Type: Spontaneous
  Country: SE (occurrence: SE)
  Receive Date: 20191223
  Receipt Date: 20191223
  Transmission Date: 20200122
  Serious: Yes (Hospitalization, Other)
  Sender: FDA-Public Use
  Company Number: SE-SA-2019SA349218

PATIENT
  Age: 32 Year
  Sex: Female

DRUGS (8)
  1. QUETIAPINE FUMARATE. [Suspect]
     Active Substance: QUETIAPINE FUMARATE
     Dosage: 50 UNKNOWN STRENGTH
     Route: 048
     Dates: start: 201904, end: 201904
  2. LAMOTRIGINE. [Suspect]
     Active Substance: LAMOTRIGINE
     Dosage: UNKNOWN DOSE
     Route: 048
     Dates: start: 201904, end: 201904
  3. PROPAVAN [Suspect]
     Active Substance: PROPIOMAZINE
     Dosage: 50 PCS
     Route: 048
     Dates: start: 201904, end: 201904
  4. ZOLPIDEM TARTRATE. [Suspect]
     Active Substance: ZOLPIDEM TARTRATE
     Dosage: 60 PCS
     Route: 048
     Dates: start: 201904, end: 201904
  5. DULOXETINE HYDROCHLORIDE. [Suspect]
     Active Substance: DULOXETINE HYDROCHLORIDE
     Dosage: UNK
     Route: 048
     Dates: start: 201904, end: 201904
  6. ELVANSE [Suspect]
     Active Substance: LISDEXAMFETAMINE DIMESYLATE
     Dosage: UNK
     Route: 048
     Dates: start: 201904, end: 201904
  7. ZOPICLONE [Suspect]
     Active Substance: ZOPICLONE
     Dosage: 50 PCS
     Route: 048
     Dates: start: 201904, end: 201904
  8. BUSPIRONE HYDROCHLORIDE. [Suspect]
     Active Substance: BUSPIRONE HYDROCHLORIDE
     Dosage: 30 DF
     Route: 048
     Dates: start: 201904, end: 201904

REACTIONS (3)
  - Depressed level of consciousness [Unknown]
  - Suicide attempt [Unknown]
  - Intentional overdose [Unknown]

NARRATIVE: CASE EVENT DATE: 201904
